FAERS Safety Report 5750580-9 (Version None)
Quarter: 2008Q2

REPORT INFORMATION
  Report Type: 
  Country: None (occurrence: None)
  Receive Date: 20080528
  Receipt Date: 20080523
  Transmission Date: 20081010
  Serious: Yes (Life-Threatening, Hospitalization)
  Sender: FDA-Public Use
  Company Number: IT-BRISTOL-MYERS SQUIBB COMPANY-14195515

PATIENT
  Age: 86 Year
  Sex: Female

DRUGS (8)
  1. COUMADIN [Suspect]
     Dates: start: 20070101, end: 20080322
  2. LOFTYL [Suspect]
     Dates: start: 20070101, end: 20080322
  3. BRUFEN [Suspect]
     Dates: start: 20080101, end: 20080322
  4. HALDOL [Concomitant]
  5. NYOGEL [Concomitant]
  6. ACESISTEM [Concomitant]
  7. VERAPAMIL HCL [Concomitant]
  8. DONEPEZIL HCL [Concomitant]

REACTIONS (5)
  - CONFUSIONAL STATE [None]
  - DEHYDRATION [None]
  - HEPATITIS TOXIC [None]
  - HYPERPYREXIA [None]
  - PROTHROMBIN TIME PROLONGED [None]
